FAERS Safety Report 22095535 (Version 1)
Quarter: 2023Q1

REPORT INFORMATION
  Report Type: Spontaneous
  Country: US (occurrence: US)
  Receive Date: 20230314
  Receipt Date: 20230314
  Transmission Date: 20230418
  Serious: No
  Sender: FDA-Public Use
  Company Number: US-PFIZER INC-202300041260

PATIENT
  Age: 56 Year
  Sex: Male
  Weight: 91.63 kg

DRUGS (1)
  1. CAVERJECT IMPULSE [Suspect]
     Active Substance: ALPROSTADIL
     Dosage: 7.5 UG (INJECTED 1-2X A WEEK)
     Dates: start: 202211

REACTIONS (3)
  - Injury associated with device [Unknown]
  - Syringe issue [Unknown]
  - Wrong technique in device usage process [Unknown]
